FAERS Safety Report 8405627-8 (Version None)
Quarter: 2012Q2

REPORT INFORMATION
  Report Type: 
  Country: None (occurrence: None)
  Receive Date: 20120604
  Receipt Date: 20120524
  Transmission Date: 20120825
  Serious: No
  Sender: FDA-Public Use
  Company Number: US-BIOGENIDEC-2012BI019046

PATIENT
  Sex: Male

DRUGS (1)
  1. TYSABRI [Suspect]
     Indication: MULTIPLE SCLEROSIS
     Route: 042
     Dates: start: 20080805

REACTIONS (6)
  - BURNING SENSATION [None]
  - GAIT DISTURBANCE [None]
  - PAIN IN EXTREMITY [None]
  - INFECTION [None]
  - BACK PAIN [None]
  - OEDEMA PERIPHERAL [None]
